FAERS Safety Report 9205044 (Version 1)
Quarter: 2013Q2

REPORT INFORMATION
  Report Type: Spontaneous
  Country: US (occurrence: None)
  Receive Date: 20130401
  Receipt Date: 20130401
  Transmission Date: 20140414
  Serious: Yes (Hospitalization)
  Sender: FDA-Public Use
  Company Number: None

PATIENT
  Age: 57 Year
  Sex: Male
  Weight: 96 kg

DRUGS (14)
  1. CIPROFLOXACIN 500 MG BAY [Suspect]
     Indication: DIVERTICULITIS
     Dosage: PRIOR TO ADMISSION, 500MG,  BID, PO
     Route: 048
  2. OMEPRAZOLE [Concomitant]
  3. METRONIDAZOLE [Concomitant]
  4. KCL 20 MEQ [Concomitant]
  5. BUPROPION XL [Concomitant]
  6. LORAZEPAM [Concomitant]
  7. HALOPERIDOL [Concomitant]
  8. FLUOXETINE [Concomitant]
  9. CLONAZEPAM [Concomitant]
  10. BENZTROPINE [Concomitant]
  11. ZOLPIDEM [Concomitant]
  12. AZATHIOPRINE [Concomitant]
  13. PREDNISONE [Concomitant]
  14. GABAPENTIN [Concomitant]

REACTIONS (2)
  - Chest pain [None]
  - Electrocardiogram QT prolonged [None]
